FAERS Safety Report 8920415 (Version 1)
Quarter: 2012Q4

REPORT INFORMATION
  Report Type: Report from Study
  Country: CA (occurrence: CA)
  Receive Date: 20121121
  Receipt Date: 20121121
  Transmission Date: 20130627
  Serious: Yes (Other)
  Sender: FDA-Public Use
  Company Number: CA-ROCHE-1155378

PATIENT
  Age: 78 Year
  Sex: Female

DRUGS (1)
  1. XOLAIR [Suspect]
     Indication: ASTHMA
     Route: 058
     Dates: start: 20100217

REACTIONS (5)
  - Road traffic accident [Unknown]
  - Chills [Recovered/Resolved]
  - Back injury [Unknown]
  - Movement disorder [Unknown]
  - Diarrhoea [Recovered/Resolved]
